FAERS Safety Report 6134350-8 (Version None)
Quarter: 2009Q1

REPORT INFORMATION
  Report Type: 
  Country: None (occurrence: None)
  Receive Date: 20090327
  Receipt Date: 20090323
  Transmission Date: 20090719
  Serious: Yes (Death, Other)
  Sender: FDA-Public Use
  Company Number: PHHY2009FR10816

PATIENT
  Sex: Male

DRUGS (2)
  1. SANDOSTATIN [Suspect]
     Indication: INCREASED BRONCHIAL SECRETION
     Dosage: 100 UG, ONCE/SINGLE
     Route: 042
  2. SANDOSTATIN [Suspect]
     Indication: TACHYPNOEA
     Dosage: 100 UG, ONCE/SINGLE

REACTIONS (4)
  - AGONAL DEATH STRUGGLE [None]
  - APNOEA [None]
  - INCREASED BRONCHIAL SECRETION [None]
  - THERAPEUTIC RESPONSE UNEXPECTED [None]
